FAERS Safety Report 5453725-3 (Version None)
Quarter: 2007Q3

REPORT INFORMATION
  Report Type: 
  Country: None (occurrence: None)
  Receive Date: 20070917
  Receipt Date: 20070907
  Transmission Date: 20080115
  Serious: Yes (Hospitalization)
  Sender: FDA-Public Use
  Company Number: CA-JNJFOC-20061105882

PATIENT
  Age: 50 Year
  Sex: Female

DRUGS (3)
  1. REMICADE [Suspect]
     Indication: CROHN'S DISEASE
     Route: 042
  2. ACCOLATE [Concomitant]
     Indication: PREMEDICATION
  3. HYDROXYZINE [Concomitant]
     Indication: PREMEDICATION

REACTIONS (1)
  - THYROIDECTOMY [None]
